FAERS Safety Report 6371534-8 (Version None)
Quarter: 2009Q3

REPORT INFORMATION
  Report Type: 
  Country: None (occurrence: None)
  Receive Date: 20090923
  Receipt Date: 20080129
  Transmission Date: 20100115
  Serious: Yes (Other)
  Sender: FDA-Public Use
  Company Number: US-ASTRAZENECA-2007UW21478

PATIENT
  Age: 21015 Day
  Sex: Female

DRUGS (23)
  1. SEROQUEL [Suspect]
     Indication: BIPOLAR DISORDER
     Route: 048
     Dates: start: 20011115
  2. SEROQUEL [Suspect]
     Indication: DEPRESSION
     Route: 048
     Dates: start: 20011115
  3. SEROQUEL [Suspect]
     Indication: INSOMNIA
     Route: 048
     Dates: start: 20011115
  4. SEROQUEL [Suspect]
     Dosage: 25 MG- 50 MG
     Route: 048
     Dates: start: 20020101, end: 20061101
  5. SEROQUEL [Suspect]
     Dosage: 25 MG- 50 MG
     Route: 048
     Dates: start: 20020101, end: 20061101
  6. SEROQUEL [Suspect]
     Dosage: 25 MG- 50 MG
     Route: 048
     Dates: start: 20020101, end: 20061101
  7. LIPITOR [Concomitant]
  8. AMLODIPINE [Concomitant]
  9. ASPIRIN [Concomitant]
  10. ATENOLOL [Concomitant]
  11. BUSPAR [Concomitant]
  12. CLARINEX [Concomitant]
  13. FLUTICASONE [Concomitant]
  14. GLUCOTROL [Concomitant]
  15. LORATADINE [Concomitant]
  16. NABUMETONE [Concomitant]
  17. PANNAZ [Concomitant]
  18. PROCARDIA [Concomitant]
  19. PROTONIX [Concomitant]
  20. TRAZODONE [Concomitant]
  21. WELLBUTRIN SR [Concomitant]
  22. ZESTORETIC [Concomitant]
  23. ZOLOFT [Concomitant]

REACTIONS (3)
  - DIABETIC COMA [None]
  - HYPOGLYCAEMIA [None]
  - KETOACIDOSIS [None]
